FAERS Safety Report 6822213-1 (Version None)
Quarter: 2010Q3

REPORT INFORMATION
  Report Type: 
  Country: None (occurrence: None)
  Receive Date: 20100707
  Receipt Date: 20100707
  Transmission Date: 20110219
  Serious: Yes (Life-Threatening, Hospitalization)
  Sender: FDA-Public Use
  Company Number: None

PATIENT
  Age: 80 Year
  Sex: Female
  Weight: 58 kg

DRUGS (3)
  1. DORIBAX [Suspect]
     Indication: UROSEPSIS
     Dosage: 250 MG Q12H IV
     Route: 042
     Dates: start: 20100703, end: 20100705
  2. LEVAQUIN [Concomitant]
  3. NORVASC [Concomitant]

REACTIONS (1)
  - GRAND MAL CONVULSION [None]
